FAERS Safety Report 9350671 (Version 1)
Quarter: 2013Q2

REPORT INFORMATION
  Report Type: Spontaneous
  Country: SE (occurrence: SE)
  Receive Date: 20130617
  Receipt Date: 20130617
  Transmission Date: 20140414
  Serious: Yes (Other)
  Sender: FDA-Public Use
  Company Number: PHHY2013SE054167

PATIENT
  Age: 60 Year
  Sex: Male

DRUGS (1)
  1. RITALIN [Suspect]
     Indication: DISTURBANCE IN ATTENTION
     Dosage: 20 MG, UNK

REACTIONS (3)
  - Depression [Recovering/Resolving]
  - Insomnia [Recovering/Resolving]
  - Alopecia [Recovering/Resolving]
